FAERS Safety Report 5495890-8 (Version None)
Quarter: 2007Q4

REPORT INFORMATION
  Report Type: 
  Country: None (occurrence: None)
  Receive Date: 20071025
  Receipt Date: 20061108
  Transmission Date: 20080405
  Serious: No
  Sender: FDA-Public Use
  Company Number: A0626722A

PATIENT
  Age: 76 Year
  Sex: Female

DRUGS (10)
  1. ADVAIR DISKUS 100/50 [Suspect]
     Indication: BRONCHITIS
     Route: 055
     Dates: start: 20060301
  2. LASIX [Concomitant]
  3. POTASSIUM CHLORIDE [Concomitant]
  4. CLONIDIN [Concomitant]
  5. ISOSORBIDE DINITRATE [Concomitant]
  6. DIGITALIS TAB [Concomitant]
  7. HYDROCHLOROTHIAZIDE [Concomitant]
  8. WARFARIN SODIUM [Concomitant]
  9. BENAZEPRIL HYDROCHLORIDE [Concomitant]
  10. SYNTHROID [Concomitant]

REACTIONS (2)
  - ARTHRALGIA [None]
  - MUSCULAR WEAKNESS [None]
